FAERS Safety Report 14088850 (Version 1)
Quarter: 2017Q4

REPORT INFORMATION
  Report Type: Report from Study
  Country: CL (occurrence: CL)
  Receive Date: 20171014
  Receipt Date: 20171014
  Transmission Date: 20180321
  Serious: Yes (Death, Other)
  Sender: FDA-Public Use
  Company Number: CL-BRISTOL-MYERS SQUIBB COMPANY-BMS-2017-018287

PATIENT
  Age: 60 Year
  Sex: Male

DRUGS (1)
  1. NIVOLUMAB [Suspect]
     Active Substance: NIVOLUMAB
     Indication: RENAL CANCER
     Dosage: 180 MG, Q2WK
     Route: 042
     Dates: start: 20160923, end: 201702

REACTIONS (2)
  - Death [Fatal]
  - Metastases to lung [Recovering/Resolving]

NARRATIVE: CASE EVENT DATE: 20170210
